FAERS Safety Report 25896027 (Version 1)
Quarter: 2025Q4

REPORT INFORMATION
  Report Type: Spontaneous
  Country: TW (occurrence: TW)
  Receive Date: 20251008
  Receipt Date: 20251008
  Transmission Date: 20260117
  Serious: Yes (Other)
  Sender: PFIZER
  Company Number: TW-PFIZER INC-PV202500119245

PATIENT
  Age: 46 Year
  Sex: Female
  Weight: 71 kg

DRUGS (4)
  1. UNASYN [Suspect]
     Active Substance: AMPICILLIN SODIUM\SULBACTAM SODIUM
     Indication: Postoperative care
     Dosage: 2000 MG, ONCE EVERY 8.0 HOURS
     Route: 041
     Dates: start: 20250830
  2. MAGNESIUM SULFATE [Suspect]
     Active Substance: MAGNESIUM SULFATE
     Indication: Postoperative care
     Dosage: 32 MEQ
     Route: 041
     Dates: start: 20250830, end: 20250830
  3. TRANSAMIN [Suspect]
     Active Substance: TRANEXAMIC ACID
     Indication: Postoperative care
     Dosage: 500 MG
     Route: 061
     Dates: start: 20250829, end: 20250829
  4. TRANSAMIN [Suspect]
     Active Substance: TRANEXAMIC ACID
     Dosage: 500.0 MG, ONCE EVERY 8.0 HOURS
     Route: 041
     Dates: start: 20250830, end: 20250830

REACTIONS (2)
  - Tachypnoea [Recovered/Resolved]
  - Dyspnoea [Recovered/Resolved]

NARRATIVE: CASE EVENT DATE: 20250829
